FAERS Safety Report 13373074 (Version 1)
Quarter: 2017Q1

REPORT INFORMATION
  Report Type: Report from Study
  Country: JP (occurrence: JP)
  Receive Date: 20170327
  Receipt Date: 20170327
  Transmission Date: 20170429
  Serious: Yes (Other)
  Sender: FDA-Public Use
  Company Number: JP-VIIV HEALTHCARE LIMITED-JP2017JPN040319

PATIENT
  Age: 37 Year
  Sex: Male

DRUGS (10)
  1. ABACAVIRSULPHATE+DOLUTEGRAVIR+LAMIVUDINE [Suspect]
     Active Substance: ABACAVIR SULFATE\DOLUTEGRAVIR SODIUM\LAMIVUDINE
     Indication: HIV INFECTION
     Dosage: 1 DF, UNK
     Route: 048
     Dates: start: 20150804
  2. PREDNISOLONE. [Concomitant]
     Active Substance: PREDNISOLONE
     Indication: THROMBOCYTOPENIA
     Dosage: 10 MG, BID
     Dates: start: 20150804, end: 20150814
  3. MYSER OINTMENT [Concomitant]
     Active Substance: DIFLUPREDNATE
     Indication: PARAPSORIASIS
     Dosage: A PROPER DOSE, BID
     Dates: start: 20151006
  4. HYDROXYZINE EMBONATE [Concomitant]
     Active Substance: HYDROXYZINE PAMOATE
     Indication: PARAPSORIASIS
     Dosage: 25 MG, PRN
     Route: 048
     Dates: start: 20151006, end: 20151031
  5. ALLELOCK [Concomitant]
     Active Substance: OLOPATADINE HYDROCHLORIDE
     Indication: PARAPSORIASIS
     Dosage: 5 MG, BID
     Dates: start: 20151006, end: 20151013
  6. KINDAVATE [Concomitant]
     Active Substance: CLOBETASONE BUTYRATE
     Indication: PARAPSORIASIS
     Dosage: A PROPER DOSE, BID
     Route: 003
     Dates: start: 20151006
  7. HALIZON [Concomitant]
     Active Substance: AMPHOTERICIN B
     Indication: ORAL CANDIDIASIS
     Dosage: 100 MG, TID
     Route: 048
     Dates: start: 20150721, end: 20150817
  8. BAKTAR [Concomitant]
     Active Substance: SULFAMETHOXAZOLE\TRIMETHOPRIM
     Indication: ANTIFUNGAL PROPHYLAXIS
     Dosage: 1 DF, QD
     Route: 048
     Dates: start: 20150721, end: 20160126
  9. GASTER [Concomitant]
     Active Substance: FAMOTIDINE
     Indication: PROPHYLAXIS AGAINST GASTROINTESTINAL ULCER
     Dosage: 20 MG, BID
     Dates: start: 20150804, end: 20150814
  10. HIRUDOID SOFT OINTMENT [Concomitant]
     Indication: PARAPSORIASIS
     Dosage: A PROPER DOSE, BID
     Dates: start: 20151006

REACTIONS (2)
  - Cytomegalovirus chorioretinitis [Recovered/Resolved]
  - Immune reconstitution inflammatory syndrome [Recovered/Resolved]

NARRATIVE: CASE EVENT DATE: 20151006
